FAERS Safety Report 8521112-7 (Version None)
Quarter: 2012Q3

REPORT INFORMATION
  Report Type: 
  Country: None (occurrence: None)
  Receive Date: 20120712
  Receipt Date: 20120712
  Transmission Date: 20120928
  Serious: Yes (Other)
  Sender: FDA-Public Use
  Company Number: None

PATIENT
  Age: 26 Year
  Sex: Male
  Weight: 104.3273 kg

DRUGS (1)
  1. PREDNISONE [Suspect]
     Indication: MUSCLE STRAIN
     Dosage: 60MG DAILY PO
     Route: 048
     Dates: start: 20120701, end: 20120706

REACTIONS (2)
  - HYPERPHAGIA [None]
  - INSOMNIA [None]
